FAERS Safety Report 8371623-2 (Version None)
Quarter: 2012Q2

REPORT INFORMATION
  Report Type: 
  Country: None (occurrence: None)
  Receive Date: 20120518
  Receipt Date: 20120515
  Transmission Date: 20120825
  Serious: Yes (Hospitalization)
  Sender: FDA-Public Use
  Company Number: US-CELGENEUS-163-21880-11082661

PATIENT
  Sex: Male
  Weight: 131.4 kg

DRUGS (15)
  1. HYZAAR [Concomitant]
     Route: 065
  2. ACETAMINOPHEN [Concomitant]
     Route: 065
  3. NEUTRA-PHOS [Concomitant]
     Dosage: 1.25 GRAM
     Route: 048
     Dates: end: 20110818
  4. REVLIMID [Suspect]
     Indication: MULTIPLE MYELOMA
     Dosage: 25 MILLIGRAM
     Route: 048
     Dates: start: 20110720, end: 20110810
  5. ASPIRIN [Concomitant]
     Dosage: 81 MILLIGRAM
     Route: 048
  6. LIPITOR [Concomitant]
     Dosage: 20 MILLIGRAM
     Route: 048
  7. HEPARIN [Concomitant]
     Route: 058
  8. PRILOSEC [Concomitant]
     Dosage: 20 MILLIGRAM
     Route: 048
  9. OXYCODONE HCL [Concomitant]
     Route: 065
  10. ALLOPURINOL [Concomitant]
     Dosage: 300 MILLIGRAM
     Route: 048
  11. FLUIDS [Concomitant]
     Route: 041
  12. LOVASTATIN [Concomitant]
     Route: 065
  13. NARCOTICS [Concomitant]
     Indication: PAIN
     Route: 065
  14. FUROSEMIDE [Concomitant]
     Dosage: 40 MILLIGRAM
     Route: 048
     Dates: end: 20110818
  15. PERCOCET [Concomitant]
     Dosage: 5/325MG
     Route: 048

REACTIONS (5)
  - VOMITING [None]
  - BLOOD CREATININE INCREASED [None]
  - NAUSEA [None]
  - BLOOD CALCIUM INCREASED [None]
  - CONSTIPATION [None]
